FAERS Safety Report 14342858 (Version 1)
Quarter: 2017Q4

REPORT INFORMATION
  Report Type: Spontaneous
  Country: US (occurrence: US)
  Receive Date: 20171229
  Receipt Date: 20171229
  Transmission Date: 20180321
  Serious: Yes (Hospitalization)
  Sender: FDA-Public Use
  Company Number: None

PATIENT
  Sex: Male
  Weight: 90 kg

DRUGS (3)
  1. TRAMADOL. [Concomitant]
     Active Substance: TRAMADOL
  2. CYCLOBENZAPRINE. [Suspect]
     Active Substance: CYCLOBENZAPRINE
     Indication: HEADACHE
     Dosage: ?          QUANTITY:60 TABLET(S);?
     Route: 048
     Dates: start: 20171220, end: 20171220
  3. COUMIDAN [Concomitant]

REACTIONS (5)
  - Dizziness [None]
  - Loss of consciousness [None]
  - Speech disorder [None]
  - Cerebrovascular accident [None]
  - Cognitive disorder [None]

NARRATIVE: CASE EVENT DATE: 20171220
